FAERS Safety Report 9442294 (Version 1)
Quarter: 2013Q3

REPORT INFORMATION
  Report Type: Spontaneous
  Country: US (occurrence: US)
  Receive Date: 20130806
  Receipt Date: 20130806
  Transmission Date: 20140515
  Serious: No
  Sender: FDA-Public Use
  Company Number: US-GLAXOSMITHKLINE-A0995127A

PATIENT
  Age: 51 Year
  Sex: Male

DRUGS (4)
  1. ADVAIR [Suspect]
     Indication: ASTHMA
     Dosage: 2PUFF TWICE PER DAY
     Route: 055
     Dates: start: 20120912, end: 20120912
  2. BENADRYL [Concomitant]
  3. SYMBICORT [Concomitant]
  4. ZYRTEC [Concomitant]

REACTIONS (4)
  - Sensory disturbance [Recovered/Resolved]
  - Throat tightness [Unknown]
  - Dyspnoea [Unknown]
  - Hypoaesthesia oral [Unknown]
